APPROVED DRUG PRODUCT: ZIDOVUDINE
Active Ingredient: ZIDOVUDINE
Strength: 300MG
Dosage Form/Route: TABLET;ORAL
Application: A076844 | Product #001
Applicant: HIKMA PHARMACEUTICALS USA INC
Approved: Sep 19, 2005 | RLD: No | RS: No | Type: DISCN